FAERS Safety Report 10851920 (Version 1)
Quarter: 2015Q1

REPORT INFORMATION
  Report Type: Spontaneous
  Country: US (occurrence: US)
  Receive Date: 20150222
  Receipt Date: 20150222
  Transmission Date: 20150721
  Serious: No
  Sender: FDA-Public Use
  Company Number: US-ALLERGAN-1422607US

PATIENT
  Age: 50 Year
  Sex: Female

DRUGS (1)
  1. BOTOX [Suspect]
     Active Substance: ONABOTULINUMTOXINA
     Indication: MIGRAINE
     Dosage: 195 UNITS, SINGLE
     Dates: start: 20140926, end: 20140926

REACTIONS (12)
  - Swollen tongue [Recovered/Resolved]
  - Aphasia [Unknown]
  - Headache [Recovered/Resolved]
  - Hypoaesthesia oral [Unknown]
  - Tongue dry [Unknown]
  - Eyelid ptosis [Unknown]
  - Hemiplegic migraine [Unknown]
  - Neck pain [Recovered/Resolved]
  - Facial paresis [Unknown]
  - Dysphagia [Recovered/Resolved]
  - Eye swelling [Unknown]
  - Influenza like illness [Unknown]

NARRATIVE: CASE EVENT DATE: 20140927
